FAERS Safety Report 6541771-8 (Version None)
Quarter: 2010Q1

REPORT INFORMATION
  Report Type: 
  Country: None (occurrence: None)
  Receive Date: 20100119
  Receipt Date: 20100107
  Transmission Date: 20100710
  Serious: Yes (Hospitalization)
  Sender: FDA-Public Use
  Company Number: AU-ASTRAZENECA-2010SE01665

PATIENT
  Age: 0 Day
  Sex: Male

DRUGS (5)
  1. QUETIAPINE FUMARATE [Suspect]
     Indication: PROPHYLAXIS
     Dosage: 900 MG TO 1000 MG / DAY
     Route: 064
  2. HALOPERIDOL [Interacting]
     Indication: PSYCHOTIC DISORDER
     Route: 064
  3. HALOPERIDOL [Interacting]
     Dosage: 7.5 TO 12.5 MG/ DAILY
     Route: 064
  4. EFFEXOR [Interacting]
     Indication: ANTIDEPRESSANT THERAPY
     Route: 064
  5. ZOLOFT [Interacting]
     Indication: ANTIDEPRESSANT THERAPY
     Route: 064

REACTIONS (5)
  - DRUG INTERACTION [None]
  - DRUG WITHDRAWAL SYNDROME [None]
  - JAUNDICE [None]
  - PREMATURE BABY [None]
  - RESPIRATORY DISTRESS [None]
